FAERS Safety Report 4288751-3 (Version None)
Quarter: 2004Q1

REPORT INFORMATION
  Report Type: 
  Country: None (occurrence: None)
  Receive Date: 20040205
  Receipt Date: 20040121
  Transmission Date: 20041129
  Serious: Yes (Life-Threatening, Hospitalization)
  Sender: FDA-Public Use
  Company Number: FR-SHR-04-020417

PATIENT
  Age: 68 Year
  Sex: Female

DRUGS (9)
  1. SOTALOL HCL [Suspect]
     Indication: ATRIAL FIBRILLATION
     Dosage: 40 MG, 2 X/DAY, ORAL
     Route: 048
     Dates: start: 20030308, end: 20031110
  2. SOTALOL HCL [Suspect]
     Indication: ATRIAL FLUTTER
     Dosage: 40 MG, 2 X/DAY, ORAL
     Route: 048
     Dates: start: 20030308, end: 20031110
  3. LASIX [Suspect]
     Dosage: 20 MG/D, ORAL
     Route: 048
     Dates: start: 20030308, end: 20031119
  4. KARDEGIC /FRA/ (ACETYLSALICYLATE LYSINE) [Concomitant]
  5. AUGMENTIN [Concomitant]
  6. FLUISEDAL (PROMETHAZINE HYDROCHLORIDE, POLYSORBATE 20, MEGLUMINE BENZO [Concomitant]
  7. AMOXIFEN (TAMOXIFEN) [Concomitant]
  8. ULTRA-LEVURE [Concomitant]
  9. HORMONES AND RELATED AGENTS [Concomitant]

REACTIONS (9)
  - BLOOD POTASSIUM DECREASED [None]
  - DRUG INTERACTION [None]
  - ELECTROCARDIOGRAM REPOLARISATION ABNORMALITY [None]
  - ELECTROCARDIOGRAM T WAVE INVERSION [None]
  - FALL [None]
  - HEAD INJURY [None]
  - STATUS EPILEPTICUS [None]
  - SYNCOPE [None]
  - TORSADE DE POINTES [None]
